FAERS Safety Report 9594694 (Version 2)
Quarter: 2013Q4

REPORT INFORMATION
  Report Type: Spontaneous
  Country: US (occurrence: None)
  Receive Date: 20131002
  Receipt Date: 20131129
  Transmission Date: 20140711
  Serious: Yes (Hospitalization)
  Sender: FDA-Public Use
  Company Number: 2013-1554

PATIENT
  Age: 69 Year
  Sex: Male

DRUGS (12)
  1. KYPROLIS [Suspect]
     Indication: PARAPROTEINAEMIA
     Dates: start: 20130807
  2. ALLOPURINOL (ALLOPURINOL) (ALLOPURINOL) [Concomitant]
  3. SURTUSSIN (GUAIFENESIN) (GUAIFENESIN) [Concomitant]
  4. DEXAMETHASONE (DEXAMETHASONE) (DEXAMETHASONE) [Concomitant]
  5. DIFLUCAN (FLUCONAZOLE) (FLUCONAZOLE) [Concomitant]
  6. ONDANSETRON (ONDANSETRON) (ONDANSETRON) [Concomitant]
  7. PRILOSEC (OMEPRAZOLE) (OMEPRAZOLE) [Concomitant]
  8. REVLIMID (LENALIDOMIDE) (LENALIDOMIDE) [Concomitant]
  9. TRAMADOL(TRAMADOL) (TRAMADOL) [Concomitant]
  10. TYLENOL (PARACETAMOL (PARACETAMOL) [Concomitant]
  11. XARELTO (RIVAROXABAN) (RIVAROXABAN) [Concomitant]
  12. ALPROZOLAM(ALPRAZOLAM) (ALPRAZOLAM) [Concomitant]

REACTIONS (18)
  - Dehydration [None]
  - Blood glucose increased [None]
  - Asthenia [None]
  - Gait disturbance [None]
  - Hypophagia [None]
  - Confusional state [None]
  - Glycosylated haemoglobin increased [None]
  - Loss of consciousness [None]
  - Fall [None]
  - Head injury [None]
  - Cardiac failure congestive [None]
  - Lung disorder [None]
  - Excoriation [None]
  - Squamous cell carcinoma [None]
  - Skin graft [None]
  - Depression [None]
  - Atrial fibrillation [None]
  - Skin lesion [None]
